FAERS Safety Report 4809311-9 (Version None)
Quarter: 2005Q4

REPORT INFORMATION
  Report Type: 
  Country: None (occurrence: None)
  Receive Date: 20051021
  Receipt Date: 20011206
  Transmission Date: 20060501
  Serious: No
  Sender: FDA-Public Use
  Company Number: USA011210112

PATIENT
  Age: 30 Year
  Sex: Male

DRUGS (1)
  1. ZYPREXA [Suspect]

REACTIONS (1)
  - PLATELET COUNT DECREASED [None]
